FAERS Safety Report 12197759 (Version 1)
Quarter: 2016Q1

REPORT INFORMATION
  Report Type: Spontaneous
  Country: US (occurrence: US)
  Receive Date: 20160322
  Receipt Date: 20160322
  Transmission Date: 20160526
  Serious: No
  Sender: FDA-Public Use
  Company Number: US-TEVA-639303ACC

PATIENT
  Age: 20 Year
  Sex: Female
  Weight: 40.86 kg

DRUGS (3)
  1. PLAN B ONE-STEP [Suspect]
     Active Substance: LEVONORGESTREL
     Route: 048
     Dates: start: 20160219, end: 20160219
  2. PLAN B ONE-STEP [Suspect]
     Active Substance: LEVONORGESTREL
     Indication: POST COITAL CONTRACEPTION
     Route: 048
     Dates: start: 20160218, end: 20160218
  3. PLAN B ONE-STEP [Suspect]
     Active Substance: LEVONORGESTREL
     Route: 048
     Dates: start: 20160220, end: 20160220

REACTIONS (3)
  - Menstruation delayed [Not Recovered/Not Resolved]
  - Muscle spasms [Not Recovered/Not Resolved]
  - Breast enlargement [Recovered/Resolved]

NARRATIVE: CASE EVENT DATE: 20160219
